FAERS Safety Report 22073202 (Version 4)
Quarter: 2023Q2

REPORT INFORMATION
  Report Type: Spontaneous
  Country: DK (occurrence: DK)
  Receive Date: 20230308
  Receipt Date: 20230623
  Transmission Date: 20230721
  Serious: Yes (Other)
  Sender: FDA-Public Use
  Company Number: None

PATIENT
  Age: 88 Year
  Sex: Female

DRUGS (1)
  1. DICLOXACILLIN SODIUM [Suspect]
     Active Substance: DICLOXACILLIN SODIUM
     Indication: Skin infection
     Dosage: 3000 MG, QD, (DOSE (DOSAGE PRESCRIBED UNTIL 09 DEC 2022, UNKNOWN IF TAKEN UNTIL 09 DEC 2022))
     Route: 048
     Dates: start: 20221124

REACTIONS (1)
  - Suspected transmission of an infectious agent via product [Unknown]

NARRATIVE: CASE EVENT DATE: 20221215
